FAERS Safety Report 9579670 (Version 1)
Quarter: 2013Q4

REPORT INFORMATION
  Report Type: Spontaneous
  Country: US (occurrence: US)
  Receive Date: 20131002
  Receipt Date: 20131002
  Transmission Date: 20140711
  Serious: Yes (Hospitalization)
  Sender: FDA-Public Use
  Company Number: US-BIOGENIDEC-2013BI093438

PATIENT
  Age: 63 Year
  Sex: Female

DRUGS (1)
  1. TYSABRI [Suspect]
     Indication: MULTIPLE SCLEROSIS
     Route: 042
     Dates: start: 20120627

REACTIONS (7)
  - Pollakiuria [Not Recovered/Not Resolved]
  - Urinary tract infection [Unknown]
  - Sepsis [Unknown]
  - Bladder diverticulum [Not Recovered/Not Resolved]
  - Fall [Recovered/Resolved]
  - Facial bones fracture [Recovered/Resolved]
  - Dizziness [Recovered/Resolved]
